FAERS Safety Report 9089189 (Version 2)
Quarter: 2013Q4

REPORT INFORMATION
  Report Type: Spontaneous
  Country: FR (occurrence: FR)
  Receive Date: 20130131
  Receipt Date: 20131204
  Transmission Date: 20140711
  Serious: Yes (Other)
  Sender: FDA-Public Use
  Company Number: PHHY2013FR007030

PATIENT
  Age: 15 Year
  Sex: Male

DRUGS (2)
  1. METHOTREXATE [Suspect]
     Route: 037
  2. LEVETIRACETAM [Interacting]
     Dosage: 15 MG/KG, PER DAY IN TWO DIVIDED DOSES
     Route: 048

REACTIONS (5)
  - Toxicity to various agents [Unknown]
  - Blood pressure increased [Recovered/Resolved]
  - Renal failure [Recovered/Resolved]
  - Vomiting [Recovered/Resolved]
  - Drug interaction [Unknown]
